FAERS Safety Report 7978346-X (Version None)
Quarter: 2011Q4

REPORT INFORMATION
  Report Type: 
  Country: None (occurrence: None)
  Receive Date: 20111214
  Receipt Date: 20111208
  Transmission Date: 20120403
  Serious: Yes (Other)
  Sender: FDA-Public Use
  Company Number: US-PFIZER INC-2011291623

PATIENT
  Sex: Female

DRUGS (2)
  1. CORGARD [Suspect]
     Indication: TACHYCARDIA
     Dosage: UNK, 1X/DAY
  2. ATIVAN [Suspect]
     Indication: TACHYCARDIA
     Dosage: 0.5 MG, 1X/DAY

REACTIONS (1)
  - BREAST CANCER [None]
